FAERS Safety Report 10635830 (Version 13)
Quarter: 2017Q2

REPORT INFORMATION
  Report Type: Spontaneous
  Country: US (occurrence: US)
  Receive Date: 20141205
  Receipt Date: 20170502
  Transmission Date: 20170829
  Serious: Yes (Hospitalization, Other)
  Sender: FDA-Public Use
  Company Number: US-GLAXOSMITHKLINE-US2014GSK031094

PATIENT
  Sex: Female

DRUGS (13)
  1. FLOLAN [Suspect]
     Active Substance: EPOPROSTENOL SODIUM
     Dosage: 21 DF, CO
     Route: 042
     Dates: start: 20141124
  2. FLOLAN [Suspect]
     Active Substance: EPOPROSTENOL SODIUM
     Dosage: UNK, CO
     Dates: start: 20141124
  3. FLOLAN [Suspect]
     Active Substance: EPOPROSTENOL SODIUM
     Dosage: UNK, CO
  4. FLOLAN [Suspect]
     Active Substance: EPOPROSTENOL SODIUM
     Indication: PULMONARY ARTERIAL HYPERTENSION
     Dosage: UNK
     Dates: start: 20160927
  5. COUMADIN [Concomitant]
     Active Substance: WARFARIN SODIUM
  6. FLOLAN [Suspect]
     Active Substance: EPOPROSTENOL SODIUM
     Dosage: 19 DF, CO
     Route: 042
  7. FLOLAN [Suspect]
     Active Substance: EPOPROSTENOL SODIUM
     Dosage: 20 DF, CO
  8. FLOLAN [Suspect]
     Active Substance: EPOPROSTENOL SODIUM
     Indication: PULMONARY ARTERIAL HYPERTENSION
     Dosage: 19 DF, CO
     Route: 042
     Dates: start: 20140925
  9. REVATIO [Concomitant]
     Active Substance: SILDENAFIL CITRATE
  10. FLOLAN [Suspect]
     Active Substance: EPOPROSTENOL SODIUM
     Dosage: 8 DF, CO
     Dates: start: 20141124
  11. FLOLAN [Suspect]
     Active Substance: EPOPROSTENOL SODIUM
     Dosage: 21 DF, CO
     Dates: start: 20141124
  12. WARFARIN [Concomitant]
     Active Substance: WARFARIN
  13. OPSUMIT [Concomitant]
     Active Substance: MACITENTAN

REACTIONS (15)
  - Internal haemorrhage [Unknown]
  - Fatigue [Not Recovered/Not Resolved]
  - Viral upper respiratory tract infection [Unknown]
  - Pneumonia [Unknown]
  - Oedema [Unknown]
  - Vasculitis [Unknown]
  - Hyperaesthesia [Unknown]
  - Nausea [Unknown]
  - Faeces discoloured [Unknown]
  - Haemorrhage [Unknown]
  - Influenza [Unknown]
  - Headache [Unknown]
  - Pain in jaw [Unknown]
  - Malaise [Unknown]
  - Dyspnoea [Unknown]
